FAERS Safety Report 9396611 (Version 2)
Quarter: 2013Q3

REPORT INFORMATION
  Report Type: Spontaneous
  Country: JP (occurrence: JP)
  Receive Date: 20130711
  Receipt Date: 20130726
  Transmission Date: 20140515
  Serious: Yes (Other)
  Sender: FDA-Public Use
  Company Number: JP-UCBSA-091282

PATIENT
  Age: 22 Year
  Sex: Male
  Weight: 21 kg

DRUGS (15)
  1. E KEPPRA [Suspect]
     Indication: EPILEPSY
     Dosage: 500 MG (STRENGTH)
     Route: 048
     Dates: start: 20121212, end: 20121225
  2. E KEPPRA [Suspect]
     Indication: EPILEPSY
     Dosage: 500 MG (STRENGTH),500 MG
     Route: 048
     Dates: start: 20121226, end: 20130417
  3. E KEPPRA [Suspect]
     Indication: EPILEPSY
     Dosage: 500 MG (STRENGTH),750 MG
     Route: 048
     Dates: start: 20130418, end: 20130507
  4. E KEPPRA [Suspect]
     Indication: EPILEPSY
     Dosage: 500 MG (STRENGTH), 1000 MG
     Route: 048
     Dates: start: 20130508
  5. L-CARTIN [Concomitant]
     Dosage: 300 MG
     Route: 048
  6. DIGOSIN [Concomitant]
     Dosage: 0.03 MG
     Route: 048
  7. RENIVACE [Concomitant]
     Dosage: 1.5 MG
     Route: 048
  8. JUVELA [Concomitant]
     Dosage: 30 MG
     Route: 048
  9. GASTER [Concomitant]
     Dosage: 15 MG
     Route: 048
  10. SODIUM VALPROATE [Concomitant]
     Dates: end: 20121212
  11. PANVITAN [Concomitant]
     Dosage: 0.5 G
     Route: 048
  12. THYRADIN-S [Concomitant]
     Dosage: 30 MCG,POWDER
     Route: 048
  13. ONEALFA [Concomitant]
     Dosage: 0.3 MCG
     Route: 048
  14. RACOL-NF [Concomitant]
     Dosage: 600 ML
     Route: 048
  15. CRAVIT [Concomitant]
     Dosage: ROUTE:OP

REACTIONS (2)
  - Platelet count decreased [Not Recovered/Not Resolved]
  - Neutrophil count decreased [Recovered/Resolved]
